FAERS Safety Report 15436354 (Version 1)
Quarter: 2018Q3

REPORT INFORMATION
  Report Type: Spontaneous
  Country: US (occurrence: US)
  Receive Date: 20180924
  Receipt Date: 20180924
  Transmission Date: 20181010
  Serious: Yes (Disabling)
  Sender: FDA-Public Use
  Company Number: None

PATIENT
  Age: 56 Year
  Sex: Female
  Weight: 38.7 kg

DRUGS (1)
  1. KLONOPIN [Suspect]
     Active Substance: CLONAZEPAM
     Indication: INSOMNIA
     Dosage: ?          QUANTITY:1 TABLET(S);?
     Route: 048
     Dates: start: 20121112

REACTIONS (17)
  - Depression [None]
  - Anxiety [None]
  - Drug tolerance [None]
  - Anhedonia [None]
  - Crying [None]
  - Loss of personal independence in daily activities [None]
  - Cognitive disorder [None]
  - Weight decreased [None]
  - Insomnia [None]
  - Suicidal ideation [None]
  - Fatigue [None]
  - Hypophagia [None]
  - Gastrointestinal disorder [None]
  - General physical health deterioration [None]
  - Hypertension [None]
  - Tachycardia [None]
  - Drug withdrawal syndrome [None]

NARRATIVE: CASE EVENT DATE: 20121112
